FAERS Safety Report 6615853-6 (Version None)
Quarter: 2010Q1

REPORT INFORMATION
  Report Type: 
  Country: None (occurrence: None)
  Receive Date: 20100305
  Receipt Date: 20100223
  Transmission Date: 20100710
  Serious: Yes (Hospitalization)
  Sender: FDA-Public Use
  Company Number: JP-SANOFI-AVENTIS-2010SA011794

PATIENT
  Age: 60 Year
  Sex: Male
  Weight: 63 kg

DRUGS (5)
  1. OXALIPLATIN [Suspect]
     Indication: LARGE INTESTINE CARCINOMA
     Route: 041
     Dates: start: 20091228, end: 20091228
  2. OXALIPLATIN [Suspect]
     Route: 041
     Dates: start: 20100208, end: 20100208
  3. TS-1 [Suspect]
     Indication: LARGE INTESTINE CARCINOMA
     Route: 048
     Dates: start: 20091228, end: 20100220
  4. AVASTIN [Suspect]
     Indication: LARGE INTESTINE CARCINOMA
     Route: 041
     Dates: start: 20091228, end: 20091228
  5. AVASTIN [Suspect]
     Route: 041
     Dates: start: 20100208, end: 20100208

REACTIONS (1)
  - GASTROINTESTINAL PERFORATION [None]
